FAERS Safety Report 14984241 (Version 1)
Quarter: 2018Q2

REPORT INFORMATION
  Report Type: Report from Study
  Country: KR (occurrence: KR)
  Receive Date: 20180607
  Receipt Date: 20180607
  Transmission Date: 20180711
  Serious: Yes (Death, Hospitalization, Other)
  Sender: FDA-Public Use
  Company Number: KR-JAZZ-2017-KR-016757

PATIENT
  Age: 53 Year
  Sex: Male
  Weight: 79 kg

DRUGS (20)
  1. PANTOPRAZOLE [Concomitant]
     Active Substance: PANTOPRAZOLE
     Indication: PROPHYLAXIS AGAINST GASTROINTESTINAL ULCER
     Dosage: 40 MG, BID
     Route: 042
     Dates: start: 20171111, end: 20171208
  2. METRONIDAZOLE. [Concomitant]
     Active Substance: METRONIDAZOLE
     Indication: INFECTION PROPHYLAXIS
     Dosage: 500 MG, TID
     Route: 042
     Dates: start: 20171125, end: 20171208
  3. FLUCONAZOLE. [Concomitant]
     Active Substance: FLUCONAZOLE
     Dosage: 200 MG, QD
     Route: 042
     Dates: start: 20171206, end: 20171207
  4. DEXMEDETOMIDINE. [Concomitant]
     Active Substance: DEXMEDETOMIDINE
     Indication: SEDATION
     Dosage: 400 ?G, QD
     Route: 042
     Dates: start: 20171207, end: 20171208
  5. TABAXIN [Concomitant]
     Active Substance: PIPERACILLIN SODIUM\TAZOBACTAM SODIUM
     Indication: INFECTION PROPHYLAXIS
     Dosage: 2.25 G, TID
     Route: 042
     Dates: start: 20171201, end: 20171203
  6. FLUCONAZOLE. [Concomitant]
     Active Substance: FLUCONAZOLE
     Indication: INFECTION PROPHYLAXIS
     Dosage: 50 MG, QD
     Route: 042
     Dates: start: 20171201, end: 20171205
  7. VANCOMYCIN [Concomitant]
     Active Substance: VANCOMYCIN
     Indication: INFECTION PROPHYLAXIS
     Dosage: 1 G, QD
     Route: 042
     Dates: start: 20171202, end: 20171206
  8. ACETYLCYSTEINE. [Concomitant]
     Active Substance: ACETYLCYSTEINE
     Indication: PROPHYLAXIS
     Dosage: 600 MG, TID
     Route: 042
     Dates: start: 20171204, end: 20171208
  9. ACETYLCYSTEINE. [Concomitant]
     Active Substance: ACETYLCYSTEINE
     Dosage: 8 ML, QD
     Route: 042
     Dates: start: 20171204, end: 20171207
  10. CIPROFLOXACIN. [Concomitant]
     Active Substance: CIPROFLOXACIN
     Indication: INFECTION PROPHYLAXIS
     Dosage: 400 MG, QD
     Route: 042
     Dates: start: 20171201, end: 20171203
  11. MEROPENEM. [Concomitant]
     Active Substance: MEROPENEM
     Indication: INFECTION PROPHYLAXIS
     Dosage: 1000 MG, BID
     Route: 042
     Dates: start: 20171204, end: 20171208
  12. ACICLOVIR [Concomitant]
     Active Substance: ACYCLOVIR
     Indication: ANTIVIRAL PROPHYLAXIS
     Dosage: 470 MG, QD
     Route: 042
     Dates: start: 20171122, end: 20171208
  13. LORAZEPAM. [Concomitant]
     Active Substance: LORAZEPAM
     Indication: INSOMNIA
     Dosage: 2 MG, PRN (WHEN NEEDED)
     Route: 042
     Dates: start: 20171129, end: 20171204
  14. REMIFENTANIL [Concomitant]
     Active Substance: REMIFENTANIL
     Dosage: 5 MG, QD
     Route: 042
     Dates: start: 20171204, end: 20171208
  15. CHLORHEXIDINE DIGLUCONATE [Concomitant]
     Active Substance: CHLORHEXIDINE
     Indication: INFECTION PROPHYLAXIS
     Dosage: 15 ML, PRN
     Route: 048
     Dates: start: 20171204, end: 20171208
  16. PROPOFOL. [Concomitant]
     Active Substance: PROPOFOL
     Indication: SEDATION
     Dosage: 1000 MG, QD
     Route: 042
     Dates: start: 20171205, end: 20171206
  17. DEFITELIO [Suspect]
     Active Substance: DEFIBROTIDE SODIUM
     Indication: VENOOCCLUSIVE DISEASE
     Dosage: 340 MG, QID
     Route: 042
     Dates: start: 20171130, end: 20171208
  18. MIDAZOLAM [Concomitant]
     Active Substance: MIDAZOLAM HYDROCHLORIDE
     Indication: SEDATION
     Dosage: 3 MG, QD
     Route: 042
     Dates: start: 20171204, end: 20171205
  19. REMIFENTANIL [Concomitant]
     Active Substance: REMIFENTANIL
     Indication: SEDATION
     Dosage: 2 MG, QD
     Route: 042
     Dates: start: 20171204, end: 20171205
  20. TAMIPOOL [Concomitant]
     Active Substance: VITAMINS
     Indication: VITAMIN SUPPLEMENTATION
     Dosage: 1 VIAL DAILY
     Route: 042
     Dates: start: 20171208, end: 20171208

REACTIONS (5)
  - Multiple organ dysfunction syndrome [Not Recovered/Not Resolved]
  - Blood pressure increased [Unknown]
  - Gingival bleeding [Recovered/Resolved]
  - Acute graft versus host disease [Fatal]
  - Haematochezia [Not Recovered/Not Resolved]

NARRATIVE: CASE EVENT DATE: 201712
